FAERS Safety Report 9022147 (Version 1)
Quarter: 2013Q1

REPORT INFORMATION
  Report Type: Spontaneous
  Country: US (occurrence: US)
  Receive Date: 20130118
  Receipt Date: 20130118
  Transmission Date: 20140127
  Serious: Yes (Other)
  Sender: FDA-Public Use
  Company Number: US-BAYER-2013-004565

PATIENT
  Age: 48 Year
  Sex: Female
  Weight: 56.69 kg

DRUGS (7)
  1. ALKA-SELTZER PLUS COLD [Suspect]
     Dosage: 2 DF, ONCE
     Route: 048
     Dates: start: 2003, end: 2003
  2. ALKA-SELTZER PLUS DAY,ALKA-SELTZER PLUS NIGHT [Suspect]
     Indication: NASOPHARYNGITIS
     Dosage: 2 DF, PRN
     Route: 048
     Dates: start: 20130107, end: 20130108
  3. AMBIEN [Concomitant]
  4. MULTIVITAMIN [Concomitant]
  5. CALCIUM W/VITAMIN D NOS [Concomitant]
  6. POTASSIUM [Concomitant]
  7. HYDROCHLOROTHIAZIDE [Concomitant]

REACTIONS (8)
  - Pharyngeal oedema [Recovered/Resolved]
  - Dysphagia [Recovered/Resolved]
  - Insomnia [Recovered/Resolved]
  - Lip swelling [Recovered/Resolved]
  - Paraesthesia oral [Recovered/Resolved]
  - Oropharyngeal pain [Recovered/Resolved]
  - Vomiting [Recovered/Resolved]
  - Nausea [Recovered/Resolved]
